FAERS Safety Report 23378172 (Version 1)
Quarter: 2024Q1

REPORT INFORMATION
  Report Type: Spontaneous
  Country: US (occurrence: None)
  Receive Date: 20240105
  Receipt Date: 20240105
  Transmission Date: 20240410
  Serious: Yes (Hospitalization, Disabling, Other)
  Sender: FDA-Public Use
  Company Number: None

PATIENT
  Age: 58 Year
  Sex: Male
  Weight: 84.15 kg

DRUGS (2)
  1. PHENTERMINE [Suspect]
     Active Substance: PHENTERMINE
     Indication: Weight decreased
     Dates: start: 20230206
  2. VITAMINS [Concomitant]
     Active Substance: VITAMINS

REACTIONS (10)
  - Hallucination [None]
  - Mania [None]
  - Inappropriate affect [None]
  - Dissociation [None]
  - Social problem [None]
  - Aggression [None]
  - Legal problem [None]
  - Eating disorder [None]
  - Insomnia [None]
  - Economic problem [None]

NARRATIVE: CASE EVENT DATE: 20230206
